FAERS Safety Report 16443539 (Version 1)
Quarter: 2019Q2

REPORT INFORMATION
  Report Type: Spontaneous
  Country: US (occurrence: US)
  Receive Date: 20190618
  Receipt Date: 20190618
  Transmission Date: 20190711
  Serious: No
  Sender: FDA-Public Use
  Company Number: US-ASTRAZENECA-2019SE81307

PATIENT
  Age: 782 Month
  Sex: Female
  Weight: 67.1 kg

DRUGS (1)
  1. PULMICORT FLEXHALER [Suspect]
     Active Substance: BUDESONIDE
     Indication: RESPIRATORY DISORDER
     Route: 055

REACTIONS (5)
  - Dyspnoea [Unknown]
  - Malaise [Unknown]
  - Product dose omission [Unknown]
  - Cough [Unknown]
  - Device issue [Unknown]

NARRATIVE: CASE EVENT DATE: 201905
